FAERS Safety Report 21446767 (Version 1)
Quarter: 2022Q4

REPORT INFORMATION
  Report Type: Spontaneous
  Country: US (occurrence: US)
  Receive Date: 20221012
  Receipt Date: 20221012
  Transmission Date: 20230113
  Serious: No
  Sender: FDA-Public Use
  Company Number: US-PFIZER INC-PV202200080298

PATIENT
  Sex: Male

DRUGS (5)
  1. IRINOTECAN HYDROCHLORIDE [Suspect]
     Active Substance: IRINOTECAN HYDROCHLORIDE
     Dosage: UNK
  2. OXALIPLATIN [Suspect]
     Active Substance: OXALIPLATIN
     Dosage: UNK
  3. FLUOROURACIL [Suspect]
     Active Substance: FLUOROURACIL
     Dosage: UNK
  4. LEUCOVORIN [Suspect]
     Active Substance: LEUCOVORIN
     Dosage: UNK
  5. AVASTIN [Suspect]
     Active Substance: BEVACIZUMAB
     Dosage: UNK

REACTIONS (1)
  - Neoplasm progression [Unknown]

NARRATIVE: CASE EVENT DATE: 20220801
